FAERS Safety Report 24121202 (Version 1)
Quarter: 2024Q3

REPORT INFORMATION
  Report Type: Report from Study
  Country: US (occurrence: US)
  Receive Date: 20240722
  Receipt Date: 20240722
  Transmission Date: 20241017
  Serious: Yes (Other)
  Sender: SANDOZ
  Company Number: US-SANDOZ-SDZ2023US059040

PATIENT
  Age: 58 Year
  Sex: Female
  Weight: 100.23 kg

DRUGS (3)
  1. TREPROSTINIL [Suspect]
     Active Substance: TREPROSTINIL
     Dosage: TREPROSTINIL DOSE - 52 NG/KG/ MI N
     Route: 042
     Dates: start: 20211111
  2. TREPROSTINIL [Suspect]
     Active Substance: TREPROSTINIL
     Indication: Pulmonary arterial hypertension
     Dosage: TREPROSTINIL DOSE - 52 NG/KG/ MI N
     Route: 042
     Dates: start: 20211111
  3. SILDENAFIL CITRATE [Concomitant]
     Active Substance: SILDENAFIL CITRATE
     Indication: Product used for unknown indication
     Dosage: UNK
     Route: 065

REACTIONS (10)
  - Diabetes mellitus [Unknown]
  - Heart rate increased [Unknown]
  - Fall [Unknown]
  - Cyst [Unknown]
  - Hand fracture [Unknown]
  - Dermatitis contact [Unknown]
  - Infusion site discomfort [Unknown]
  - Injection site pain [Unknown]
  - Suture related complication [Unknown]
  - Fatigue [Unknown]

NARRATIVE: CASE EVENT DATE: 20231201
